FAERS Safety Report 8284821-3 (Version None)
Quarter: 2012Q2

REPORT INFORMATION
  Report Type: 
  Country: None (occurrence: None)
  Receive Date: 20120413
  Receipt Date: 20110328
  Transmission Date: 20120825
  Serious: No
  Sender: FDA-Public Use
  Company Number: US-ASTRAZENECA-2011SE02416

PATIENT
  Age: 69 Year
  Sex: Male
  Weight: 96.6 kg

DRUGS (15)
  1. ZETIA [Concomitant]
     Indication: HYPERCHOLESTEROLAEMIA
  2. METFORMIN HCL [Concomitant]
     Indication: DIABETES MELLITUS
  3. GABAPENTIN [Concomitant]
     Indication: NEUROPATHY PERIPHERAL
  4. GLYBURIDE [Concomitant]
     Indication: DIABETES MELLITUS
  5. JANUVIA [Concomitant]
     Indication: DIABETES MELLITUS
  6. ASPIRIN [Concomitant]
     Indication: CARDIAC DISORDER
  7. XANAX [Concomitant]
  8. TOPROL-XL [Concomitant]
     Indication: HYPERTENSION
  9. ANDROGEL [Concomitant]
  10. VENTOLIN [Concomitant]
     Indication: CHRONIC OBSTRUCTIVE PULMONARY DISEASE
  11. FISH OIL [Concomitant]
  12. SIMVASTATIN [Concomitant]
     Indication: HYPERCHOLESTEROLAEMIA
  13. NEXIUM [Suspect]
     Route: 048
     Dates: start: 20090101
  14. NEXIUM [Suspect]
     Indication: GASTROOESOPHAGEAL REFLUX DISEASE
     Route: 048
     Dates: start: 20060101, end: 20090101
  15. DOMPERIDONE [Concomitant]
     Indication: DYSPEPSIA

REACTIONS (6)
  - MIDDLE INSOMNIA [None]
  - DYSPEPSIA [None]
  - SLEEP DISORDER DUE TO GENERAL MEDICAL CONDITION, INSOMNIA TYPE [None]
  - GASTROOESOPHAGEAL REFLUX DISEASE [None]
  - DRUG INEFFECTIVE [None]
  - INCORRECT DOSE ADMINISTERED [None]
